FAERS Safety Report 7350289-4 (Version None)
Quarter: 2011Q1

REPORT INFORMATION
  Report Type: 
  Country: None (occurrence: None)
  Receive Date: 20110309
  Receipt Date: 20110309
  Transmission Date: 20110831
  Serious: Yes (Hospitalization)
  Sender: FDA-Public Use
  Company Number: None

PATIENT
  Sex: Female
  Weight: 64.5 kg

DRUGS (8)
  1. ALPHA LIPOIC ACID [Concomitant]
  2. ASPIRIN [Concomitant]
  3. VITAMIN-MINERAL COMPOUND TAB [Concomitant]
  4. VITAMINS B-12, B-6 [Concomitant]
  5. SODIUM CHLORIDE 0.9% [Suspect]
     Indication: MACULAR DEGENERATION
     Dosage: 180 ML ONCE EVERY TWO WEEKS IV (042)
     Route: 042
     Dates: start: 20110120, end: 20110303
  6. GARLIC [Concomitant]
  7. GINKGO BILOBA [Concomitant]
  8. MULTI-VITAMIN [Concomitant]

REACTIONS (3)
  - CHEST PAIN [None]
  - BLOOD PRESSURE INCREASED [None]
  - FLUSHING [None]
